FAERS Safety Report 21579763 (Version 1)
Quarter: 2022Q4

REPORT INFORMATION
  Report Type: Spontaneous
  Country: IT (occurrence: IT)
  Receive Date: 20221110
  Receipt Date: 20221110
  Transmission Date: 20230113
  Serious: Yes (Other)
  Sender: FDA-Public Use
  Company Number: None

PATIENT
  Age: 47 Year
  Sex: Female
  Weight: 65 kg

DRUGS (5)
  1. IRINOTECAN HYDROCHLORIDE [Suspect]
     Active Substance: IRINOTECAN HYDROCHLORIDE
     Dosage: 210 MG, DURATION OF ADMINISTRATION: 90 MINUTES
     Route: 042
  2. LEUCOVORIN CALCIUM [Suspect]
     Active Substance: LEUCOVORIN CALCIUM
     Dosage: 140 MG, DURATION OF ADMINISTRATION:120 MINUTES
     Route: 042
  3. CETUXIMAB [Suspect]
     Active Substance: CETUXIMAB
     Dosage: 700 MG, DURATION OF ADMINISTRATION: 90 MINUTES
     Route: 042
  4. FLUOROURACIL [Suspect]
     Active Substance: FLUOROURACIL
     Dosage: 560 MG, DURATION OF ADMINISTRATION: 5 MINUTES
     Route: 042
  5. FLUOROURACIL [Suspect]
     Active Substance: FLUOROURACIL
     Dosage: 1680 MG, DURATION OF ADMINISTRATION: 48 HOURS
     Route: 042

REACTIONS (2)
  - Neurotoxicity [Recovered/Resolved]
  - Nausea [Recovered/Resolved]

NARRATIVE: CASE EVENT DATE: 20220727
